FAERS Safety Report 21721348 (Version 2)
Quarter: 2023Q1

REPORT INFORMATION
  Report Type: Spontaneous
  Country: PL (occurrence: PL)
  Receive Date: 20221213
  Receipt Date: 20230313
  Transmission Date: 20230417
  Serious: Yes (Other)
  Sender: FDA-Public Use
  Company Number: PL-JNJFOC-20221213588

PATIENT
  Sex: Male

DRUGS (3)
  1. DARZALEX [Suspect]
     Active Substance: DARATUMUMAB
     Indication: Primary amyloidosis
     Dosage: CYCLE 6
     Route: 058
  2. VELCADE [Suspect]
     Active Substance: BORTEZOMIB
     Indication: Primary amyloidosis
     Dosage: CYCLE 6
     Route: 065
  3. DEXAMETHASONE [Suspect]
     Active Substance: DEXAMETHASONE
     Indication: Primary amyloidosis
     Dosage: CYCLE 6
     Route: 065

REACTIONS (4)
  - Pneumonia pneumococcal [Unknown]
  - Respiratory failure [Unknown]
  - Chronic kidney disease [Unknown]
  - Anaemia [Unknown]
